FAERS Safety Report 25744593 (Version 2)
Quarter: 2025Q3

REPORT INFORMATION
  Report Type: Spontaneous
  Country: EU (occurrence: EU)
  Receive Date: 20250901
  Receipt Date: 20250910
  Transmission Date: 20251021
  Serious: Yes (Other)
  Sender: NOVARTIS
  Company Number: EU-002147023-NVSC2025AT132908

PATIENT
  Sex: Female

DRUGS (4)
  1. COSENTYX [Interacting]
     Active Substance: SECUKINUMAB
     Indication: Rheumatic disorder
     Route: 065
  2. COSENTYX [Interacting]
     Active Substance: SECUKINUMAB
     Dosage: 150 MG, BIW
     Route: 058
     Dates: start: 20250806
  3. MOUNJARO [Interacting]
     Active Substance: TIRZEPATIDE
     Indication: Product used for unknown indication
     Route: 065
     Dates: start: 202504, end: 2025
  4. Lucamid [Concomitant]
     Indication: Epilepsy
     Route: 065
     Dates: start: 2008

REACTIONS (3)
  - Seizure [Unknown]
  - Somnambulism [Unknown]
  - Drug interaction [Unknown]

NARRATIVE: CASE EVENT DATE: 20250821
